FAERS Safety Report 4491774-2 (Version None)
Quarter: 2004Q4

REPORT INFORMATION
  Report Type: 
  Country: None (occurrence: None)
  Receive Date: 20041029
  Receipt Date: 20041018
  Transmission Date: 20050328
  Serious: Yes (Hospitalization)
  Sender: FDA-Public Use
  Company Number: 04-0078PO

PATIENT
  Age: 35 Year
  Sex: Male

DRUGS (4)
  1. MEFENAMIC ACID     (PONSTAL) [Suspect]
     Indication: ARTHRALGIA
     Dosage: PO
     Route: 048
     Dates: start: 20040402
  2. MEFENAMIC ACID     (PONSTAL) [Suspect]
     Indication: MALAISE
     Dosage: PO
     Route: 048
     Dates: start: 20040402
  3. MEFENAMIC ACID     (PONSTAL) [Suspect]
     Indication: PYREXIA
     Dosage: PO
     Route: 048
     Dates: start: 20040402
  4. ANTIBIOTIC AND FLUID REPLACEMENT THERAPIES [Concomitant]

REACTIONS (13)
  - ABDOMINAL DISCOMFORT [None]
  - ARTHRALGIA [None]
  - ASCITES [None]
  - COLLAGEN DISORDER [None]
  - COMPLEMENT FACTOR C3 DECREASED [None]
  - COMPLEMENT FACTOR C4 DECREASED [None]
  - GLOMERULONEPHRITIS ACUTE [None]
  - INFECTION [None]
  - MALAISE [None]
  - OEDEMA [None]
  - PYREXIA [None]
  - RENAL DISORDER [None]
  - TUBULOINTERSTITIAL NEPHRITIS [None]
